FAERS Safety Report 7959194-3 (Version None)
Quarter: 2011Q4

REPORT INFORMATION
  Report Type: 
  Country: None (occurrence: None)
  Receive Date: 20111206
  Receipt Date: 20111130
  Transmission Date: 20120403
  Serious: Yes (Other)
  Sender: FDA-Public Use
  Company Number: US-SANOFI-AVENTIS-2011SA076390

PATIENT
  Age: 71 Year
  Sex: Male

DRUGS (1)
  1. MULTAQ [Suspect]
     Indication: ATRIAL FIBRILLATION
     Route: 065
     Dates: start: 20111001

REACTIONS (5)
  - INSOMNIA [None]
  - DIARRHOEA [None]
  - DELIRIUM [None]
  - DECREASED APPETITE [None]
  - MUSCULAR WEAKNESS [None]
